FAERS Safety Report 21332042 (Version 1)
Quarter: 2022Q3

REPORT INFORMATION
  Report Type: Spontaneous
  Country: US (occurrence: None)
  Receive Date: 20220913
  Receipt Date: 20220913
  Transmission Date: 20221026
  Serious: No
  Sender: FDA-Public Use
  Company Number: None

PATIENT
  Sex: Male

DRUGS (1)
  1. CAPECITABINE [Suspect]
     Active Substance: CAPECITABINE
     Dosage: 1000 MG EVERY 12 HOUR  BID ORAL? ?
     Route: 048

REACTIONS (3)
  - Neoplasm progression [None]
  - Neuropathy peripheral [None]
  - Lung neoplasm malignant [None]
